FAERS Safety Report 4763125-7 (Version None)
Quarter: 2005Q3

REPORT INFORMATION
  Report Type: 
  Country: None (occurrence: None)
  Receive Date: 20050826
  Receipt Date: 20050208
  Transmission Date: 20060218
  Serious: Yes (Other)
  Sender: FDA-Public Use
  Company Number: USA-2004-0014494

PATIENT
  Age: 41 Year
  Sex: Male
  Weight: 86.2 kg

DRUGS (3)
  1. OXYCONTIN [Suspect]
     Indication: PAIN
     Dosage: 20 MG, SEE TEXT
  2. PERCOCET [Concomitant]
  3. CYCLOBENZAPRINE HCL [Concomitant]

REACTIONS (3)
  - DRUG INEFFECTIVE [None]
  - PAIN [None]
  - POLYSUBSTANCE ABUSE [None]
